FAERS Safety Report 6968764-0 (Version None)
Quarter: 2010Q3

REPORT INFORMATION
  Report Type: 
  Country: None (occurrence: None)
  Receive Date: 20100907
  Receipt Date: 20100831
  Transmission Date: 20110219
  Serious: Yes (Life-Threatening, Hospitalization)
  Sender: FDA-Public Use
  Company Number: JP-ASTRAZENECA-2010SE41014

PATIENT
  Age: 58 Year
  Sex: Male

DRUGS (3)
  1. QUETIAPINE FUMARATE [Suspect]
     Indication: HALLUCINATION, VISUAL
     Route: 048
  2. L-DOPA/CARBIDOPA [Suspect]
     Indication: PARKINSON'S DISEASE
  3. CABERGOLINE [Suspect]
     Indication: PARKINSON'S DISEASE

REACTIONS (3)
  - CARDIO-RESPIRATORY ARREST [None]
  - HYPOTHERMIA [None]
  - VENTRICULAR TACHYCARDIA [None]
